FAERS Safety Report 10453299 (Version 1)
Quarter: 2014Q3

REPORT INFORMATION
  Report Type: Spontaneous
  Country: US (occurrence: US)
  Receive Date: 20140915
  Receipt Date: 20140915
  Transmission Date: 20150326
  Serious: No
  Sender: FDA-Public Use
  Company Number: US-PFIZER INC-2014254108

PATIENT
  Age: 72 Year
  Sex: Female
  Weight: 67.12 kg

DRUGS (1)
  1. CELEBREX [Suspect]
     Active Substance: CELECOXIB
     Indication: POSTOPERATIVE CARE
     Dosage: 200 MG, 1X/DAY
     Route: 048
     Dates: start: 20140805, end: 20140910

REACTIONS (2)
  - Abdominal pain upper [Unknown]
  - Pain [Unknown]

NARRATIVE: CASE EVENT DATE: 2014
